FAERS Safety Report 23204739 (Version 1)
Quarter: 2023Q4

REPORT INFORMATION
  Report Type: Spontaneous
  Country: CN (occurrence: CN)
  Receive Date: 20231120
  Receipt Date: 20231120
  Transmission Date: 20240110
  Serious: Yes (Hospitalization, Other)
  Sender: FDA-Public Use
  Company Number: CN-BRACCO-2023CN05870

PATIENT
  Age: 54 Year
  Sex: Female

DRUGS (1)
  1. GADOBENATE DIMEGLUMINE [Suspect]
     Active Substance: GADOBENATE DIMEGLUMINE
     Indication: Magnetic resonance imaging
     Dosage: 7.93 G, SINGLE
     Route: 042
     Dates: start: 20231108, end: 20231108

REACTIONS (4)
  - Laryngeal oedema [Recovering/Resolving]
  - Face oedema [Recovering/Resolving]
  - Eyelid oedema [Recovering/Resolving]
  - Chest discomfort [Recovering/Resolving]

NARRATIVE: CASE EVENT DATE: 20231108
